FAERS Safety Report 5752225-0 (Version None)
Quarter: 2008Q2

REPORT INFORMATION
  Report Type: 
  Country: None (occurrence: None)
  Receive Date: 20080529
  Receipt Date: 20080519
  Transmission Date: 20081010
  Serious: Yes (Life-Threatening)
  Sender: FDA-Public Use
  Company Number: JP-JNJFOC-20080500293

PATIENT
  Sex: Female
  Weight: 43 kg

DRUGS (9)
  1. ITRACONAZOLE [Suspect]
     Indication: FUNGAL INFECTION
     Route: 042
  2. SIGMART [Concomitant]
     Indication: MYOCARDIAL INFARCTION
     Route: 041
  3. NEOPAREN [Concomitant]
     Indication: GASTRIC OPERATION
     Route: 041
  4. VANCOMYCIN [Concomitant]
     Indication: SEPTIC SHOCK
     Route: 041
  5. CIPROFLOXACIN [Concomitant]
     Indication: SEPTIC SHOCK
     Route: 041
  6. ARODATE [Concomitant]
     Indication: SEPTIC SHOCK
     Route: 042
  7. HANP [Concomitant]
     Route: 042
  8. PHYSIO 140 [Concomitant]
     Indication: SEPTIC SHOCK
     Route: 041
  9. ALBUMINAR [Concomitant]
     Indication: SEPTIC SHOCK
     Route: 041

REACTIONS (2)
  - BLOOD PRESSURE DECREASED [None]
  - CARDIO-RESPIRATORY ARREST [None]
